FAERS Safety Report 7749577-9 (Version None)
Quarter: 2011Q3

REPORT INFORMATION
  Report Type: 
  Country: None (occurrence: None)
  Receive Date: 20110914
  Receipt Date: 20110906
  Transmission Date: 20111222
  Serious: Yes (Death, Hospitalization)
  Sender: FDA-Public Use
  Company Number: DE-SANOFI-AVENTIS-2011SA038481

PATIENT
  Age: 76 Year
  Sex: Male

DRUGS (9)
  1. PREDNISONE [Suspect]
     Route: 065
  2. PANTOPRAZOLE [Concomitant]
     Indication: PROPHYLAXIS
     Route: 048
     Dates: start: 20100101
  3. TORSEMIDE [Concomitant]
     Indication: ATRIAL FIBRILLATION
     Route: 048
     Dates: start: 20100101, end: 20110428
  4. METOPROLOL SUCCINATE [Concomitant]
     Indication: ATRIAL FIBRILLATION
     Route: 048
     Dates: start: 20100101, end: 20110428
  5. PREDNISONE [Concomitant]
     Indication: PROSTATE CANCER
     Route: 048
     Dates: start: 20110101
  6. AMLODIPINE [Concomitant]
     Indication: ATRIAL FIBRILLATION
     Route: 065
     Dates: start: 20100101, end: 20110428
  7. ATACAND [Concomitant]
     Indication: ATRIAL FIBRILLATION
     Route: 048
     Dates: start: 20100101, end: 20110428
  8. TAXOTERE [Suspect]
     Indication: PROSTATE CANCER METASTATIC
     Dosage: 3.5714 MG/M2 (75 MG/M2, 1 IN 3 WK)
     Route: 041
     Dates: start: 20110401, end: 20110401
  9. MARCUMAR [Concomitant]
     Indication: ATRIAL FIBRILLATION
     Route: 048
     Dates: start: 20100101, end: 20110428

REACTIONS (6)
  - STAPHYLOCOCCAL SEPSIS [None]
  - MULTI-ORGAN FAILURE [None]
  - DEHYDRATION [None]
  - ERYSIPELAS [None]
  - LEUKOPENIA [None]
  - ILEUS PARALYTIC [None]
